FAERS Safety Report 4507588-0 (Version None)
Quarter: 2004Q4

REPORT INFORMATION
  Report Type: 
  Country: None (occurrence: None)
  Receive Date: 20040928
  Receipt Date: 20040831
  Transmission Date: 20050328
  Serious: Yes (Death)
  Sender: FDA-Public Use
  Company Number: 04P-163-0272032-00

PATIENT
  Age: 73 Year
  Sex: Female

DRUGS (14)
  1. HUMIRA [Suspect]
     Indication: RHEUMATOID ARTHRITIS
     Dosage: 40 MG, 1 IN 2 WK, SUBCUTANEOUS
     Route: 058
  2. SULFASALAZINE [Concomitant]
  3. FOLIC ACID [Concomitant]
  4. PREDNISONE [Concomitant]
  5. PROVELLA-14 [Concomitant]
  6. SERTRALINE HYDROCHLORIDE [Concomitant]
  7. AMITRIPTYLINE HYDROCHLORIDE [Concomitant]
  8. VICODIN [Concomitant]
  9. CALCIUM WITH VITAMIN D [Concomitant]
  10. MULTI-VITAMINS [Concomitant]
  11. METHOTREXATE [Concomitant]
  12. SALBUTAMOL [Concomitant]
  13. ROFECOXIB [Concomitant]
  14. CELECOXIB [Concomitant]

REACTIONS (1)
  - DEATH [None]
